FAERS Safety Report 15111662 (Version 1)
Quarter: 2018Q2

REPORT INFORMATION
  Report Type: Spontaneous
  Country: BE (occurrence: US)
  Receive Date: 20180612
  Receipt Date: 20180612
  Transmission Date: 20180711
  Serious: Yes (Hospitalization)
  Sender: FDA-Public Use
  Company Number: None

PATIENT
  Age: 39 Year
  Sex: Male
  Weight: 81.2 kg

DRUGS (5)
  1. TAXOL [Suspect]
     Active Substance: PACLITAXEL
     Dates: end: 20180518
  2. CISPLATIN. [Suspect]
     Active Substance: CISPLATIN
     Dates: end: 20180522
  3. IFOSFAMIDE. [Suspect]
     Active Substance: IFOSFAMIDE
     Dates: end: 20180522
  4. G-CSF (FILGRASTIM, AMGEN) [Suspect]
     Active Substance: FILGRASTIM
     Dates: end: 20180518
  5. CLEXANE [Concomitant]
     Active Substance: ENOXAPARIN SODIUM

REACTIONS (5)
  - Blood phosphorus decreased [None]
  - Diarrhoea [None]
  - Pyrexia [None]
  - Neutropenic sepsis [None]
  - Thrombocytopenia [None]

NARRATIVE: CASE EVENT DATE: 20180528
